FAERS Safety Report 4478923-7 (Version None)
Quarter: 2004Q4

REPORT INFORMATION
  Report Type: 
  Country: None (occurrence: None)
  Receive Date: 20041014
  Receipt Date: 20041001
  Transmission Date: 20050328
  Serious: Yes (Hospitalization)
  Sender: FDA-Public Use
  Company Number: 2004068232

PATIENT
  Age: 65 Year
  Sex: Male

DRUGS (12)
  1. NITROGLYCERIN [Suspect]
     Indication: CHEST PAIN
     Dosage: (0.3 MG MG, AS NECESSARY), SUBLINGUAL
     Route: 060
  2. FLUTICASONE PROPIONATE [Concomitant]
  3. SALMETEROL XINAFOATE (SALMETEROL XINAFOATE) [Concomitant]
  4. DILTIAZEM HYDROCHLORIDE [Concomitant]
  5. ALENDRONATE SODIUM [Concomitant]
  6. ATORVASTATIN (ATORVASTATIN) [Concomitant]
  7. SALBUTAMOL (SALBUTAMOL) [Concomitant]
  8. FLUTICASONE PROPIONATE [Concomitant]
  9. SALMETEROL XINAFOATE (SALMETEROL XINAFOATE) [Concomitant]
  10. DILTIAZEM HYDROCHLORIDE [Concomitant]
  11. ALENDORNATE SODIUM (ALENDRONATE SODIUM) [Concomitant]
  12. ATORVASTATIN (ATORVASTATIN) [Concomitant]

REACTIONS (6)
  - ANGINA PECTORIS [None]
  - ASTHENIA [None]
  - CONDITION AGGRAVATED [None]
  - DIZZINESS [None]
  - DRUG INEFFECTIVE [None]
  - PHARMACEUTICAL PRODUCT COMPLAINT [None]
